FAERS Safety Report 11745191 (Version 1)
Quarter: 2015Q4

REPORT INFORMATION
  Report Type: Spontaneous
  Country: US (occurrence: US)
  Receive Date: 20151117
  Receipt Date: 20151117
  Transmission Date: 20160304
  Serious: Yes (Death)
  Sender: FDA-Public Use
  Company Number: US-BEH-2015055711

PATIENT
  Age: 68 Year
  Sex: Female
  Weight: 112 kg

DRUGS (20)
  1. DYAZIDE [Concomitant]
     Active Substance: HYDROCHLOROTHIAZIDE\TRIAMTERENE
  2. HIZENTRA [Suspect]
     Active Substance: HUMAN IMMUNOGLOBULIN G
     Indication: IMMUNODEFICIENCY COMMON VARIABLE
     Route: 058
  3. EPIPEN [Concomitant]
     Active Substance: EPINEPHRINE
  4. HIZENTRA [Suspect]
     Active Substance: HUMAN IMMUNOGLOBULIN G
     Route: 058
  5. HUMALOG [Concomitant]
     Active Substance: INSULIN LISPRO
  6. OXYBUTYNIN [Concomitant]
     Active Substance: OXYBUTYNIN
  7. DIPHENHYDRAMINE. [Concomitant]
     Active Substance: DIPHENHYDRAMINE
  8. RAMIPRIL. [Concomitant]
     Active Substance: RAMIPRIL
  9. LANTUS [Concomitant]
     Active Substance: INSULIN GLARGINE
  10. POTASSIUM [Concomitant]
     Active Substance: POTASSIUM
  11. LIDOCAINE/PRILOCAINE [Concomitant]
  12. GABAPENTIN. [Concomitant]
     Active Substance: GABAPENTIN
  13. MUCINEX ER [Concomitant]
  14. EFFEXOR XR [Concomitant]
     Active Substance: VENLAFAXINE HYDROCHLORIDE
  15. CALTRATE 600/VIT D [Concomitant]
  16. LEVOTHYROXINE. [Concomitant]
     Active Substance: LEVOTHYROXINE
  17. VITAMIN C [Concomitant]
     Active Substance: ASCORBIC ACID
  18. TRAMADOL. [Concomitant]
     Active Substance: TRAMADOL
  19. LASIX [Concomitant]
     Active Substance: FUROSEMIDE
  20. TYLENOL EX-STR [Concomitant]

REACTIONS (1)
  - Death [Fatal]

NARRATIVE: CASE EVENT DATE: 20151102
